FAERS Safety Report 6189075-X (Version None)
Quarter: 2009Q2

REPORT INFORMATION
  Report Type: 
  Country: None (occurrence: None)
  Receive Date: 20090512
  Receipt Date: 20090504
  Transmission Date: 20091009
  Serious: Yes (Other)
  Sender: FDA-Public Use
  Company Number: MESA-2009-005 F-UP#1

PATIENT
  Sex: Female

DRUGS (1)
  1. MESALAMINE [Suspect]
     Indication: GASTROINTESTINAL DISORDER
     Dosage: 4G, ORAL
     Route: 048
     Dates: start: 20090301, end: 20090504

REACTIONS (1)
  - NEPHROLITHIASIS [None]
